FAERS Safety Report 4452204-X (Version None)
Quarter: 2004Q3

REPORT INFORMATION
  Report Type: 
  Country: None (occurrence: None)
  Receive Date: 20040917
  Receipt Date: 20040805
  Transmission Date: 20050211
  Serious: Yes (Hospitalization)
  Sender: FDA-Public Use
  Company Number: JP-BRISTOL-MYERS SQUIBB COMPANY-12663936

PATIENT
  Age: 69 Year
  Sex: Female

DRUGS (3)
  1. MEVALOTIN [Suspect]
     Indication: HYPERLIPIDAEMIA
     Route: 048
     Dates: start: 20000712, end: 20040626
  2. ARTANE [Concomitant]
     Indication: PARKINSONISM
     Dates: start: 20001127, end: 20040626
  3. SELBEX [Concomitant]
     Indication: GASTROOESOPHAGEAL REFLUX DISEASE
     Dates: start: 20031001, end: 20040626

REACTIONS (2)
  - HYPERCAPNIA [None]
  - RHABDOMYOLYSIS [None]
